FAERS Safety Report 7346582-1 (Version None)
Quarter: 2011Q1

REPORT INFORMATION
  Report Type: 
  Country: None (occurrence: None)
  Receive Date: 20110311
  Receipt Date: 20110228
  Transmission Date: 20110831
  Serious: Yes (Hospitalization, Other)
  Sender: FDA-Public Use
  Company Number: US-JNJFOC-2010001148

PATIENT
  Sex: Female

DRUGS (3)
  1. ROLAIDS TAB [Suspect]
     Indication: DYSPEPSIA
     Dosage: DAILY DOSE TEXT: SIX TO SEVEN TABLETS PER DAY
     Route: 048
     Dates: start: 19900101, end: 20100101
  2. ROLAIDS [Suspect]
     Indication: PRODUCT USED FOR UNKNOWN INDICATION
  3. TYLENOL [Suspect]
     Indication: PRODUCT USED FOR UNKNOWN INDICATION
     Dosage: DAILY DOSE TEXT: UNKNOWN
     Route: 048

REACTIONS (7)
  - INCORRECT DRUG ADMINISTRATION DURATION [None]
  - PRODUCT QUALITY ISSUE [None]
  - GALLBLADDER OPERATION [None]
  - NAUSEA [None]
  - ABDOMINAL PAIN UPPER [None]
  - MALAISE [None]
  - DIARRHOEA [None]
